FAERS Safety Report 6415741-4 (Version None)
Quarter: 2009Q4

REPORT INFORMATION
  Report Type: 
  Country: None (occurrence: None)
  Receive Date: 20091022
  Receipt Date: 20090405
  Transmission Date: 20100525
  Serious: Yes (Hospitalization)
  Sender: FDA-Public Use
  Company Number: 2009009228

PATIENT
  Age: 53 Year
  Sex: Male
  Weight: 99.7913 kg

DRUGS (2)
  1. ACTIQ [Suspect]
     Indication: PAIN
     Dosage: (1200 MCG,4-6 DAILY), BU
     Route: 002
     Dates: start: 20010101
  2. OXYCONTIN [Concomitant]

REACTIONS (4)
  - LIMB INJURY [None]
  - SKIN GRAFT [None]
  - SKIN INFECTION [None]
  - THERMAL BURN [None]
